FAERS Safety Report 4348557-3 (Version None)
Quarter: 2004Q2

REPORT INFORMATION
  Report Type: 
  Country: None (occurrence: None)
  Receive Date: 20040422
  Receipt Date: 20040330
  Transmission Date: 20050107
  Serious: Yes (Death)
  Sender: FDA-Public Use
  Company Number: EWC040438713

PATIENT
  Age: 77 Year
  Sex: Female

DRUGS (9)
  1. HUMATROPE [Suspect]
     Indication: BLOOD GROWTH HORMONE DECREASED
     Dates: start: 19990805
  2. HYDROCORTISON [Concomitant]
  3. ZANTAC [Concomitant]
  4. BAMBEC (BAMBUTEROL) [Concomitant]
  5. SINGULAIR [Concomitant]
  6. KININ (QUININE HYDROCHLORIDE) [Concomitant]
  7. OXIS TURBOHALER ^ASTRA ZENECA^ (FORMOTEROL FUMARATE) [Concomitant]
  8. PULMICORT [Concomitant]
  9. BERODUAL [Concomitant]

REACTIONS (2)
  - MYOCARDIAL INFARCTION [None]
  - SUDDEN CARDIAC DEATH [None]
